FAERS Safety Report 11360773 (Version 3)
Quarter: 2015Q4

REPORT INFORMATION
  Report Type: Spontaneous
  Country: FR (occurrence: FR)
  Receive Date: 20150810
  Receipt Date: 20151207
  Transmission Date: 20160304
  Serious: Yes (Other)
  Sender: FDA-Public Use
  Company Number: FR-LEO PHARMA-236130

PATIENT
  Age: 62 Year
  Sex: Male

DRUGS (1)
  1. PICATO [Suspect]
     Active Substance: INGENOL MEBUTATE
     Indication: ACTINIC KERATOSIS
     Dosage: 1 TUBE ONCE DAILY PER APPLICATION SITE FOR 1 DAY
     Route: 061
     Dates: start: 20140505, end: 20140507

REACTIONS (7)
  - Application site burn [Recovered/Resolved]
  - Application site swelling [Recovered/Resolved]
  - Incorrect drug administration duration [Unknown]
  - Hyperkeratosis [Recovered/Resolved]
  - Drug ineffective [Unknown]
  - Basal cell carcinoma [Recovered/Resolved]
  - Drug administered at inappropriate site [Unknown]

NARRATIVE: CASE EVENT DATE: 201405
